FAERS Safety Report 9653167 (Version 2)
Quarter: 2013Q4

REPORT INFORMATION
  Report Type: Report from Study
  Country: US (occurrence: US)
  Receive Date: 20131029
  Receipt Date: 20131104
  Transmission Date: 20140711
  Serious: Yes (Hospitalization)
  Sender: FDA-Public Use
  Company Number: US-GLAXOSMITHKLINE-A1039207B

PATIENT
  Age: 71 Year
  Sex: Female
  Weight: 72.8 kg

DRUGS (4)
  1. PAZOPANIB [Suspect]
     Indication: EMBRYONAL RHABDOMYOSARCOMA
     Dosage: 800MG PER DAY
     Route: 048
     Dates: start: 20130814
  2. TRAMETINIB [Suspect]
     Indication: EMBRYONAL RHABDOMYOSARCOMA
     Dosage: 2MG PER DAY
     Route: 048
     Dates: start: 20130814
  3. NSAID [Suspect]
  4. BACTRIM [Suspect]

REACTIONS (3)
  - Renal failure acute [Unknown]
  - Anaemia [Unknown]
  - Thrombocytopenia [Unknown]
